FAERS Safety Report 8791906 (Version 4)
Quarter: 2013Q1

REPORT INFORMATION
  Report Type: Spontaneous
  Country: IT (occurrence: IT)
  Receive Date: 20120918
  Receipt Date: 20130220
  Transmission Date: 20140127
  Serious: Yes (Hospitalization)
  Sender: FDA-Public Use
  Company Number: PHHY2012IT080318

PATIENT
  Age: 43 Year
  Sex: Female

DRUGS (4)
  1. TOLEP [Suspect]
     Route: 048
     Dates: start: 20120713, end: 20120713
  2. ANAFRANIL [Suspect]
     Route: 048
     Dates: start: 20120713, end: 20120713
  3. TRITTICO [Suspect]
     Dosage: 20 DF, ONCE DAILY
     Route: 048
     Dates: start: 20120713, end: 20120713
  4. LORAZEPAM [Concomitant]

REACTIONS (3)
  - Speech disorder [Not Recovered/Not Resolved]
  - Self injurious behaviour [Not Recovered/Not Resolved]
  - Drug abuse [Not Recovered/Not Resolved]
